FAERS Safety Report 20788912 (Version 1)
Quarter: 2022Q2

REPORT INFORMATION
  Report Type: Spontaneous
  Country: US (occurrence: US)
  Receive Date: 20220505
  Receipt Date: 20220505
  Transmission Date: 20220721
  Serious: Yes (Other)
  Sender: FDA-Public Use
  Company Number: US-MYLANLABS-2022M1032940

PATIENT
  Age: 4 Decade
  Sex: Female

DRUGS (18)
  1. DOXEPIN [Suspect]
     Active Substance: DOXEPIN
     Indication: Sphincter of Oddi dysfunction
     Dosage: UNK
     Route: 065
  2. DOXEPIN [Suspect]
     Active Substance: DOXEPIN
     Indication: Analgesic therapy
  3. SUMATRIPTAN [Suspect]
     Active Substance: SUMATRIPTAN
     Indication: Sphincter of Oddi dysfunction
     Dosage: UNK
     Route: 065
  4. SUMATRIPTAN [Suspect]
     Active Substance: SUMATRIPTAN
     Indication: Analgesic therapy
  5. BACLOFEN [Suspect]
     Active Substance: BACLOFEN
     Indication: Sphincter of Oddi dysfunction
     Dosage: 10 MILLIGRAM
     Route: 065
  6. BACLOFEN [Suspect]
     Active Substance: BACLOFEN
     Indication: Analgesic therapy
  7. TIZANIDINE [Suspect]
     Active Substance: TIZANIDINE
     Indication: Sphincter of Oddi dysfunction
     Dosage: UNK
     Route: 065
  8. TIZANIDINE [Suspect]
     Active Substance: TIZANIDINE
     Indication: Analgesic therapy
  9. LORAZEPAM [Suspect]
     Active Substance: LORAZEPAM
     Indication: Sphincter of Oddi dysfunction
     Dosage: UNK
     Route: 065
  10. LORAZEPAM [Suspect]
     Active Substance: LORAZEPAM
     Indication: Analgesic therapy
  11. TRAMADOL [Suspect]
     Active Substance: TRAMADOL
     Indication: Sphincter of Oddi dysfunction
     Dosage: UNK
     Route: 065
  12. TRAMADOL [Suspect]
     Active Substance: TRAMADOL
     Indication: Analgesic therapy
  13. PREGABALIN [Suspect]
     Active Substance: PREGABALIN
     Indication: Sphincter of Oddi dysfunction
     Dosage: UNK
     Route: 065
  14. PREGABALIN [Suspect]
     Active Substance: PREGABALIN
     Indication: Analgesic therapy
  15. LIDOCAINE [Suspect]
     Active Substance: LIDOCAINE
     Indication: Sphincter of Oddi dysfunction
     Dosage: UNK
     Route: 061
  16. LIDOCAINE [Suspect]
     Active Substance: LIDOCAINE
     Indication: Analgesic therapy
  17. DULOXETINE [Suspect]
     Active Substance: DULOXETINE
     Indication: Sphincter of Oddi dysfunction
     Dosage: 60 MILLIGRAM, QD
     Route: 065
  18. AMITRIPTYLINE [Suspect]
     Active Substance: AMITRIPTYLINE
     Indication: Sphincter of Oddi dysfunction
     Dosage: 35 MILLIGRAM, QD
     Route: 065

REACTIONS (2)
  - Drug ineffective [Unknown]
  - Off label use [Unknown]
